FAERS Safety Report 4620505-8 (Version None)
Quarter: 2005Q1

REPORT INFORMATION
  Report Type: 
  Country: None (occurrence: None)
  Receive Date: 20050321
  Receipt Date: 20050321
  Transmission Date: 20050727
  Serious: Yes (Disabling)
  Sender: FDA-Public Use
  Company Number: None

PATIENT
  Age: 63 Year
  Sex: Female
  Weight: 83.9154 kg

DRUGS (2)
  1. AVELOX [Suspect]
     Indication: SINUSITIS
     Dosage: 400MG  DAILY  ORAL
     Route: 048
     Dates: start: 20041110, end: 20041117
  2. AVELOX [Suspect]
     Indication: UPPER RESPIRATORY TRACT INFECTION
     Dosage: 400MG  DAILY  ORAL
     Route: 048
     Dates: start: 20041110, end: 20041117

REACTIONS (4)
  - FOOT FRACTURE [None]
  - LIGAMENT INJURY [None]
  - LIGAMENT SPRAIN [None]
  - STRESS FRACTURE [None]
